FAERS Safety Report 8186773-3 (Version None)
Quarter: 2012Q1

REPORT INFORMATION
  Report Type: 
  Country: None (occurrence: None)
  Receive Date: 20120306
  Receipt Date: 20120306
  Transmission Date: 20120608
  Serious: No
  Sender: FDA-Public Use
  Company Number: None

PATIENT
  Age: 52 Year
  Sex: Female
  Weight: 72.574 kg

DRUGS (2)
  1. LEVAQUIN [Suspect]
     Indication: SINUSITIS
     Dosage: 750
     Route: 048
     Dates: start: 20110411, end: 20110428
  2. CIPRO [Concomitant]
     Dosage: 500
     Route: 048
     Dates: start: 20030818, end: 20030909

REACTIONS (12)
  - HYPOAESTHESIA [None]
  - ARTHRALGIA [None]
  - HEADACHE [None]
  - PERIPHERAL COLDNESS [None]
  - MUSCULOSKELETAL PAIN [None]
  - INSOMNIA [None]
  - TREMOR [None]
  - DYSKINESIA [None]
  - NECK PAIN [None]
  - PAIN IN EXTREMITY [None]
  - ASTHENIA [None]
  - DIZZINESS [None]
